FAERS Safety Report 7702013-0 (Version None)
Quarter: 2011Q3

REPORT INFORMATION
  Report Type: 
  Country: None (occurrence: None)
  Receive Date: 20110822
  Receipt Date: 20110817
  Transmission Date: 20111222
  Serious: Yes (Death, Hospitalization, Other)
  Sender: FDA-Public Use
  Company Number: PHEH2010US03414

PATIENT
  Sex: Female

DRUGS (14)
  1. TAMOXIFEN CITRATE [Concomitant]
  2. TYLENOL-500 [Concomitant]
  3. FEMARA [Concomitant]
  4. PRILOSEC [Concomitant]
  5. PROCRIT                            /00909301/ [Concomitant]
  6. FASLODEX [Concomitant]
  7. EFFEXOR [Concomitant]
  8. LASIX [Concomitant]
  9. AROMASIN [Concomitant]
  10. LISINOPRIL [Concomitant]
  11. AREDIA [Suspect]
     Dosage: UNK
     Dates: start: 20020710
  12. HYDROCHLOROTHIAZIDE [Concomitant]
  13. LEVOTHYROXINE SODIUM [Concomitant]
  14. NIFEDIPINE [Concomitant]

REACTIONS (45)
  - INJURY [None]
  - ANXIETY [None]
  - DYSPHONIA [None]
  - OSTEOARTHRITIS [None]
  - SYNOVIAL CYST [None]
  - OEDEMA PERIPHERAL [None]
  - CONFUSIONAL STATE [None]
  - LICHEN SCLEROSUS [None]
  - BURNS FIRST DEGREE [None]
  - RADIATION OESOPHAGITIS [None]
  - ANAEMIA [None]
  - HYPOTHYROIDISM [None]
  - HALLUCINATION, VISUAL [None]
  - VULVAL LEUKOPLAKIA [None]
  - OSTEONECROSIS OF JAW [None]
  - BACK PAIN [None]
  - EXPOSED BONE IN JAW [None]
  - HAEMORRHOIDS [None]
  - GINGIVAL ULCERATION [None]
  - ANHEDONIA [None]
  - SPINAL COMPRESSION FRACTURE [None]
  - AZOTAEMIA [None]
  - BLADDER DIVERTICULUM [None]
  - GASTROOESOPHAGEAL REFLUX DISEASE [None]
  - GINGIVAL OEDEMA [None]
  - HIATUS HERNIA [None]
  - ARTHRALGIA [None]
  - METASTASES TO LIVER [None]
  - ASCITES [None]
  - HAEMATURIA [None]
  - SPINAL CORD COMPRESSION [None]
  - GRANULOMA [None]
  - HEPATIC LESION [None]
  - CEREBRAL ATROPHY [None]
  - CELLULITIS [None]
  - URINARY INCONTINENCE [None]
  - INGUINAL HERNIA STRANGULATED [None]
  - DEATH [None]
  - DECREASED APPETITE [None]
  - SMALL INTESTINAL OBSTRUCTION [None]
  - PAIN [None]
  - SPINAL COLUMN STENOSIS [None]
  - PLEURAL EFFUSION [None]
  - LYMPHADENOPATHY MEDIASTINAL [None]
  - URINARY TRACT INFECTION [None]
